FAERS Safety Report 8272948-1 (Version None)
Quarter: 2012Q2

REPORT INFORMATION
  Report Type: 
  Country: None (occurrence: None)
  Receive Date: 20120406
  Receipt Date: 20120406
  Transmission Date: 20120825
  Serious: Yes (Death, Hospitalization)
  Sender: FDA-Public Use
  Company Number: None

PATIENT
  Sex: Female
  Weight: 62.7 kg

DRUGS (11)
  1. BENADRYL [Concomitant]
  2. ACTOS [Concomitant]
  3. TRAMADOL HCL [Concomitant]
  4. REGLAN [Concomitant]
  5. XANAX [Concomitant]
  6. GLIPIZIDE [Concomitant]
  7. BACTRIM [Concomitant]
  8. INSULIN [Concomitant]
  9. PROTONIX [Concomitant]
  10. ZORTRESS [Suspect]
     Indication: PROPHYLAXIS AGAINST TRANSPLANT REJECTION
     Dosage: ZORTRESS 1.5 MG BID PO
     Route: 048
     Dates: start: 20101121, end: 20120107
  11. CLONIDINE [Concomitant]

REACTIONS (5)
  - HYPOKALAEMIA [None]
  - ARTERIAL OCCLUSIVE DISEASE [None]
  - DEHYDRATION [None]
  - PULSE ABSENT [None]
  - UNRESPONSIVE TO STIMULI [None]
